FAERS Safety Report 7716125-9 (Version None)
Quarter: 2011Q3

REPORT INFORMATION
  Report Type: 
  Country: None (occurrence: None)
  Receive Date: 20110829
  Receipt Date: 20110818
  Transmission Date: 20111222
  Serious: No
  Sender: FDA-Public Use
  Company Number: US-B.I. PHARMACEUTICALS,INC./RIDGEFIELD-2011-BP-20557BP

PATIENT
  Age: 68 Year
  Sex: Female

DRUGS (9)
  1. COMBIVENT [Suspect]
     Indication: CHRONIC OBSTRUCTIVE PULMONARY DISEASE
  2. FUROSEMIDE [Concomitant]
     Indication: FLUID RETENTION
  3. PRILOSEC [Concomitant]
     Indication: ABDOMINAL DISCOMFORT
  4. VITAMIN TAB [Concomitant]
     Indication: SUPPLEMENTATION THERAPY
  5. LEVEMIR [Concomitant]
     Indication: DIABETES MELLITUS
  6. FISH OIL [Concomitant]
     Indication: SUPPLEMENTATION THERAPY
  7. COMBIVENT [Suspect]
     Indication: BRONCHITIS
     Route: 055
     Dates: start: 20060101
  8. METOPROLOL TARTRATE [Concomitant]
     Indication: HYPERTENSION
  9. HUMALOG [Concomitant]
     Indication: DIABETES MELLITUS

REACTIONS (2)
  - DYSGEUSIA [None]
  - THROAT IRRITATION [None]
